FAERS Safety Report 16199705 (Version 1)
Quarter: 2019Q2

REPORT INFORMATION
  Report Type: Spontaneous
  Country: DE (occurrence: DE)
  Receive Date: 20190415
  Receipt Date: 20190415
  Transmission Date: 20190711
  Serious: Yes (Hospitalization, Other)
  Sender: FDA-Public Use
  Company Number: DE-PFIZER INC-2019161489

PATIENT
  Age: 21 Month
  Sex: Female

DRUGS (1)
  1. TAVOR (LORAZEPAM) [Suspect]
     Active Substance: LORAZEPAM
     Dosage: 6 MG TOTAL
     Route: 048
     Dates: start: 20190318

REACTIONS (7)
  - Somnolence [Recovered/Resolved]
  - Hypotonia [Recovered/Resolved]
  - Bundle branch block right [Unknown]
  - Body temperature increased [Unknown]
  - Accidental exposure to product by child [Recovered/Resolved]
  - Respiratory tract infection [Unknown]
  - Pharyngeal erythema [Unknown]

NARRATIVE: CASE EVENT DATE: 20190318
